FAERS Safety Report 4774589-7 (Version None)
Quarter: 2005Q3

REPORT INFORMATION
  Report Type: 
  Country: None (occurrence: None)
  Receive Date: 20050914
  Receipt Date: 20041025
  Transmission Date: 20060218
  Serious: Yes (Death, Disabling)
  Sender: FDA-Public Use
  Company Number: 163-20785-04100737

PATIENT
  Sex: Female

DRUGS (1)
  1. THALOMID [Suspect]
     Indication: DRUG USE FOR UNKNOWN INDICATION

REACTIONS (3)
  - DEATH [None]
  - DIFFICULTY IN WALKING [None]
  - NEUROPATHY PERIPHERAL [None]
